FAERS Safety Report 4810940-7 (Version None)
Quarter: 2005Q4

REPORT INFORMATION
  Report Type: 
  Country: None (occurrence: None)
  Receive Date: 20051025
  Receipt Date: 20051013
  Transmission Date: 20060501
  Serious: Yes (Hospitalization, Other)
  Sender: FDA-Public Use
  Company Number: 2005142220

PATIENT
  Age: 81 Year
  Sex: Female
  Weight: 76.2043 kg

DRUGS (11)
  1. CELEBREX [Suspect]
     Indication: ARTHRITIS
     Dosage: 1 IN 1 D
  2. BEXTRA [Suspect]
     Indication: ARTHRITIS
  3. PREDNISONE [Suspect]
     Indication: IDIOPATHIC THROMBOCYTOPENIC PURPURA
     Dates: start: 20050701
  4. NEXIUM [Concomitant]
  5. SYNTHROID [Concomitant]
  6. NEURONTIN [Concomitant]
  7. BISOPPROLOL FUMARATE/HYDROCHLOROTHIAZIDE (BISOPROLOL FUMARATE, HYDROCH [Concomitant]
  8. CALCIUM (CALCIUM) [Concomitant]
  9. VITAMINS (VITAMINS) [Concomitant]
  10. LIPITOR [Concomitant]
  11. MOBIC [Concomitant]

REACTIONS (5)
  - BACK DISORDER [None]
  - IDIOPATHIC THROMBOCYTOPENIC PURPURA [None]
  - PHARMACEUTICAL PRODUCT COMPLAINT [None]
  - SCIATICA [None]
  - SPINAL COMPRESSION FRACTURE [None]
